FAERS Safety Report 20207686 (Version 1)
Quarter: 2021Q4

REPORT INFORMATION
  Report Type: Spontaneous
  Country: CN (occurrence: CN)
  Receive Date: 20211220
  Receipt Date: 20211220
  Transmission Date: 20220303
  Serious: Yes (Other)
  Sender: FDA-Public Use
  Company Number: CN-PFIZER INC-202101771057

PATIENT
  Age: 14 Year
  Sex: Female
  Weight: 51 kg

DRUGS (2)
  1. METHOTREXATE [Suspect]
     Active Substance: METHOTREXATE
     Indication: Acute lymphocytic leukaemia
     Dosage: 7.5 G, 1X/DAY
     Route: 041
     Dates: start: 20211110, end: 20211110
  2. MERCAPTOPURINE [Concomitant]
     Active Substance: MERCAPTOPURINE
     Indication: Acute lymphocytic leukaemia
     Dosage: 38 MG, 1X/DAY
     Route: 041
     Dates: start: 20211110, end: 20211116

REACTIONS (2)
  - Renal impairment [Recovering/Resolving]
  - Liver injury [Recovering/Resolving]

NARRATIVE: CASE EVENT DATE: 20211111
